FAERS Safety Report 7424281-5 (Version None)
Quarter: 2011Q2

REPORT INFORMATION
  Report Type: 
  Country: None (occurrence: None)
  Receive Date: 20110411
  Receipt Date: 20110401
  Transmission Date: 20111010
  Serious: Yes (Other)
  Sender: FDA-Public Use
  Company Number: ACO_22520_2011

PATIENT
  Age: 57 Year
  Sex: Female

DRUGS (12)
  1. FISH OIL (FISH OIL) [Concomitant]
  2. EFFEXOR [Concomitant]
  3. FLAXSEED (LINIUM USITATISSIMUM SEED OIL) [Concomitant]
  4. AMPYRA [Suspect]
     Indication: PRODUCT USED FOR UNKNOWN INDICATION
     Dates: start: 20100421
  5. COZAAR [Concomitant]
  6. GILENYEA (FINGOLIMOD) [Concomitant]
  7. VITAMIN B NOS (VITAMIN B NOS) [Concomitant]
  8. SANCTURA [Concomitant]
  9. LEVOTHYROXINE (LEVOTHYROXINE) [Concomitant]
  10. XYZAL [Concomitant]
  11. ESTROGENS SOL/INJ [Concomitant]
  12. VITAMIN E [Concomitant]

REACTIONS (14)
  - LOSS OF CONSCIOUSNESS [None]
  - WEIGHT DECREASED [None]
  - TONGUE BITING [None]
  - COMPULSIVE LIP BITING [None]
  - DREAMY STATE [None]
  - TREMOR [None]
  - ARTERIOVENOUS MALFORMATION [None]
  - CONFUSIONAL STATE [None]
  - DYSARTHRIA [None]
  - DISEASE PROGRESSION [None]
  - CONVULSION [None]
  - OVERDOSE [None]
  - INSOMNIA [None]
  - MULTIPLE SCLEROSIS RELAPSE [None]
